FAERS Safety Report 4640052-7 (Version None)
Quarter: 2005Q2

REPORT INFORMATION
  Report Type: 
  Country: None (occurrence: None)
  Receive Date: 20050415
  Receipt Date: 20050404
  Transmission Date: 20051028
  Serious: No
  Sender: FDA-Public Use
  Company Number: 2005GB00659

PATIENT
  Age: 72 Year
  Sex: Female

DRUGS (4)
  1. LISINOPRIL [Suspect]
     Indication: HYPERTENSION
     Dosage: 10 MG PO
     Route: 048
     Dates: start: 20050104, end: 20050222
  2. SIMVASTATIN [Concomitant]
  3. ASPIRIN [Concomitant]
  4. HUMALOG [Concomitant]

REACTIONS (1)
  - HYPOGLYCAEMIA [None]
